FAERS Safety Report 19470926 (Version 2)
Quarter: 2021Q2

REPORT INFORMATION
  Report Type: Spontaneous
  Country: US (occurrence: US)
  Receive Date: 20210629
  Receipt Date: 20210630
  Transmission Date: 20210717
  Serious: Yes (Other)
  Sender: FDA-Public Use
  Company Number: US-CIPLA LTD.-2021US04452

PATIENT

DRUGS (4)
  1. ATAZANAVIR. [Suspect]
     Active Substance: ATAZANAVIR
     Dosage: 1 TOTAL DAILY DOSE 400 (UNITS UNSPECIFIED), 2ND COURSE
     Route: 048
     Dates: start: 2018
  2. RITONAVIR. [Suspect]
     Active Substance: RITONAVIR
     Indication: ANTIRETROVIRAL THERAPY
     Dosage: 1 TOTAL DAILY DOSE, 1ST COURSE
     Route: 048
  3. ATAZANAVIR. [Suspect]
     Active Substance: ATAZANAVIR
     Indication: ANTIRETROVIRAL THERAPY
     Dosage: 1 TOTAL DAILY DOSE, 1ST COURSE
     Route: 048
     Dates: end: 2018
  4. EMTRICITABINE/TENOFOVIR [Suspect]
     Active Substance: EMTRICITABINE\TENOFOVIR
     Indication: ANTIRETROVIRAL THERAPY
     Dosage: 1 TOTAL DAILY DOSE, 1ST COURSE
     Route: 048

REACTIONS (2)
  - Premature delivery [Unknown]
  - Exposure during pregnancy [Unknown]

NARRATIVE: CASE EVENT DATE: 20180621
